FAERS Safety Report 9595919 (Version 1)
Quarter: 2013Q4

REPORT INFORMATION
  Report Type: Spontaneous
  Country: US (occurrence: US)
  Receive Date: 20131004
  Receipt Date: 20131004
  Transmission Date: 20140711
  Serious: Yes (Other)
  Sender: FDA-Public Use
  Company Number: US-BRACCO-009978

PATIENT
  Age: 16 Year
  Sex: Male

DRUGS (5)
  1. MULTIHANCE [Suspect]
     Indication: DIAGNOSTIC PROCEDURE
  2. PROHANCE [Suspect]
     Indication: DIAGNOSTIC PROCEDURE
  3. OPTIMARK [Suspect]
     Indication: DIAGNOSTIC PROCEDURE
  4. OMNISCAN [Suspect]
     Indication: DIAGNOSTIC PROCEDURE
  5. MAGNEVIST [Suspect]
     Indication: DIAGNOSTIC PROCEDURE

REACTIONS (1)
  - Nephrogenic systemic fibrosis [Unknown]
